FAERS Safety Report 19019033 (Version 2)
Quarter: 2021Q2

REPORT INFORMATION
  Report Type: Spontaneous
  Country: US (occurrence: US)
  Receive Date: 20210317
  Receipt Date: 20210630
  Transmission Date: 20210717
  Serious: Yes (Hospitalization)
  Sender: FDA-Public Use
  Company Number: US-PFIZER INC-2021171801

PATIENT
  Age: 65 Year
  Sex: Female
  Weight: 56.7 kg

DRUGS (2)
  1. IBRANCE [Suspect]
     Active Substance: PALBOCICLIB
     Indication: BREAST CANCER FEMALE
     Dosage: 125 MG, CYCLIC (21DAYS ON, 7 DAYS OFF)
     Route: 048
     Dates: start: 20210104
  2. IBRANCE [Suspect]
     Active Substance: PALBOCICLIB
     Dosage: 100 MG, DAILY (1 DAILY FOR 21 DAYS)
     Route: 048
     Dates: start: 20200104

REACTIONS (3)
  - White blood cell count decreased [Not Recovered/Not Resolved]
  - Blood potassium decreased [Unknown]
  - Thrombosis [Unknown]
